FAERS Safety Report 9814887 (Version 3)
Quarter: 2014Q1

REPORT INFORMATION
  Report Type: Spontaneous
  Country: US (occurrence: US)
  Receive Date: 20140113
  Receipt Date: 20140123
  Transmission Date: 20141002
  Serious: No
  Sender: FDA-Public Use
  Company Number: US-PFIZER INC-2014011117

PATIENT
  Age: 56 Year
  Sex: Female
  Weight: 71.2 kg

DRUGS (8)
  1. CHANTIX [Suspect]
     Indication: SMOKING CESSATION THERAPY
     Dosage: 0.5 MG, 1X/DAY
     Route: 048
     Dates: start: 20131231
  2. CHANTIX [Suspect]
     Dosage: 1 MG, 2X/DAY
     Route: 048
     Dates: end: 20140112
  3. RELAFEN [Concomitant]
     Dosage: UNK
  4. LISINOPRIL [Concomitant]
     Dosage: UNK
  5. AMBIEN [Concomitant]
     Dosage: UNK
  6. RANITIDINE [Concomitant]
     Dosage: UNK
  7. ALENDRONATE [Concomitant]
     Dosage: UNK
  8. AMLODIPINE [Concomitant]
     Dosage: UNK

REACTIONS (5)
  - Abdominal discomfort [Unknown]
  - Oral pain [Unknown]
  - Skin exfoliation [Unknown]
  - Headache [Unknown]
  - Hostility [Unknown]
